FAERS Safety Report 8024844-2 (Version None)
Quarter: 2012Q1

REPORT INFORMATION
  Report Type: 
  Country: None (occurrence: None)
  Receive Date: 20120105
  Receipt Date: 20111230
  Transmission Date: 20120608
  Serious: Yes (Death, Hospitalization)
  Sender: FDA-Public Use
  Company Number: GB-CUBIST-2011S1000811

PATIENT
  Sex: Male

DRUGS (2)
  1. CUBICIN [Suspect]
     Indication: ENDOCARDITIS
     Route: 042
  2. VANCOMYCIN [Suspect]
     Indication: ENDOCARDITIS
     Route: 065

REACTIONS (3)
  - DEATH [None]
  - ENDOCARDITIS [None]
  - DRUG INEFFECTIVE [None]
